FAERS Safety Report 7390318-5 (Version None)
Quarter: 2011Q2

REPORT INFORMATION
  Report Type: 
  Country: None (occurrence: None)
  Receive Date: 20110401
  Receipt Date: 20110318
  Transmission Date: 20111010
  Serious: Yes (Hospitalization)
  Sender: FDA-Public Use
  Company Number: FR-ALLERGAN-1104516US

PATIENT
  Age: 95 Year
  Sex: Male

DRUGS (4)
  1. FUROSEMIDE [Concomitant]
     Dosage: 20 MG, QD
  2. TRIMATAZIDINE [Concomitant]
     Dosage: 60 MG, QD
  3. SIMVASTATIN [Concomitant]
     Dosage: 10 MG, QD
  4. TROSPIUM CHLORIDE [Suspect]
     Indication: URINARY INCONTINENCE
     Dosage: 40 MG, QD
     Route: 048
     Dates: start: 20110103, end: 20110203

REACTIONS (2)
  - CONFUSIONAL STATE [None]
  - FALL [None]
